FAERS Safety Report 16803721 (Version 1)
Quarter: 2019Q3

REPORT INFORMATION
  Report Type: Spontaneous
  Country: DE (occurrence: DE)
  Receive Date: 20190913
  Receipt Date: 20190913
  Transmission Date: 20191005
  Serious: Yes (Hospitalization, Other)
  Sender: FDA-Public Use
  Company Number: DE-AUROBINDO-AUR-APL-2018-017655

PATIENT
  Age: 64 Year
  Sex: Male

DRUGS (6)
  1. OXALIPLATIN. [Suspect]
     Active Substance: OXALIPLATIN
     Indication: RECTAL CANCER METASTATIC
     Dosage: LAST APPLICATION PRIOR TO THE EVENT ON 2-MAR-2009 (6TH CYCLE)
     Route: 042
  2. BEVACIZUMAB. [Suspect]
     Active Substance: BEVACIZUMAB
     Indication: RECTAL CANCER METASTATIC
     Dosage: LAST APPLICATION PRIOR TO THE EVENT ON 2-MAR-2009 (6TH CYCLE)
     Route: 042
  3. OXALIPLATIN CONCENTRATE FOR SOLUTION FOR INFUSION [Suspect]
     Active Substance: OXALIPLATIN
     Indication: RECTAL CANCER METASTATIC
     Dosage: 130 MILLIGRAM, CYCLICAL
     Route: 042
     Dates: start: 20090302
  4. AVASTIN [Suspect]
     Active Substance: BEVACIZUMAB
     Indication: RECTAL CANCER METASTATIC
     Dosage: UNK
     Route: 065
     Dates: start: 20090302
  5. CAPECITABINE. [Suspect]
     Active Substance: CAPECITABINE
     Indication: RECTAL CANCER METASTATIC
     Dosage: 6TH CYCLE, COMMULATIVE DOSE OF 49000 MG/M2
     Route: 048
     Dates: start: 20090302, end: 20090315
  6. XELODA [Suspect]
     Active Substance: CAPECITABINE
     Indication: RECTAL CANCER METASTATIC
     Dosage: 2000 MILLIGRAM, 6TH CYCLE: 2 MAR 2009 TO 15 MAR 2009
     Route: 048
     Dates: start: 20090302

REACTIONS (7)
  - Decreased appetite [Unknown]
  - Diarrhoea [Recovered/Resolved]
  - Erosive duodenitis [Unknown]
  - Gastritis [Unknown]
  - Vomiting [Unknown]
  - Duodenitis [Unknown]
  - Gastrooesophageal reflux disease [Unknown]

NARRATIVE: CASE EVENT DATE: 20090315
